FAERS Safety Report 25977102 (Version 1)
Quarter: 2025Q4

REPORT INFORMATION
  Report Type: Spontaneous
  Country: JP (occurrence: JP)
  Receive Date: 20251030
  Receipt Date: 20251030
  Transmission Date: 20260119
  Serious: Yes (Death)
  Sender: ALEXION PHARMACEUTICALS
  Company Number: JP-AstraZeneca-CH-00979926A

PATIENT
  Age: 59 Year
  Sex: Female

DRUGS (1)
  1. IMFINZI [Suspect]
     Active Substance: DURVALUMAB
     Indication: Small cell lung cancer
     Dosage: 1500 MILLIGRAM, Q3W
     Dates: start: 20250918

REACTIONS (3)
  - Colitis [Fatal]
  - Neutropenia [Fatal]
  - Sepsis [Fatal]
